FAERS Safety Report 9076474 (Version 1)
Quarter: 2013Q1

REPORT INFORMATION
  Report Type: Report from Study
  Country: US (occurrence: US)
  Receive Date: 20130129
  Receipt Date: 20130129
  Transmission Date: 20140127
  Serious: No
  Sender: FDA-Public Use
  Company Number: US-ABBOTT-12P-163-0947757-00

PATIENT
  Age: 38 Year
  Sex: Female

DRUGS (4)
  1. HUMIRA 40 MG/0.8 ML PEN [Suspect]
     Indication: PSORIASIS
     Dates: start: 201012, end: 201110
  2. HUMIRA 40 MG/0.8 ML PEN [Suspect]
     Dosage: LOADING DOSE
     Dates: start: 20120607, end: 20120607
  3. HUMIRA 40 MG/0.8 ML PEN [Suspect]
     Dates: start: 20120614
  4. XANAX [Concomitant]
     Indication: ANXIETY

REACTIONS (2)
  - Drug dose omission [Recovered/Resolved]
  - Psoriasis [Recovering/Resolving]
